FAERS Safety Report 14971640 (Version 2)
Quarter: 2018Q4

REPORT INFORMATION
  Report Type: Report from Study
  Country: US (occurrence: US)
  Receive Date: 20180604
  Receipt Date: 20181206
  Transmission Date: 20190204
  Serious: No
  Sender: FDA-Public Use
  Company Number: PHEH2018US021686

PATIENT
  Age: 40 Year
  Sex: Female

DRUGS (1)
  1. GILENYA [Suspect]
     Active Substance: FINGOLIMOD HYDROCHLORIDE
     Indication: MULTIPLE SCLEROSIS
     Dosage: 0.5 MG, QD
     Route: 048
     Dates: start: 20180109

REACTIONS (3)
  - Migraine with aura [Unknown]
  - White blood cell count decreased [Unknown]
  - Aphasia [Unknown]

NARRATIVE: CASE EVENT DATE: 201801
